FAERS Safety Report 5897274-7 (Version None)
Quarter: 2008Q3

REPORT INFORMATION
  Report Type: 
  Country: None (occurrence: None)
  Receive Date: 20080924
  Receipt Date: 20080924
  Transmission Date: 20090109
  Serious: Yes (Other)
  Sender: FDA-Public Use
  Company Number: None

PATIENT
  Age: 26 Year
  Sex: Female
  Weight: 59.4212 kg

DRUGS (1)
  1. SERTRALINE [Suspect]
     Indication: DYSTONIA
     Dosage: 25 MG PO
     Route: 048
     Dates: start: 20060923, end: 20060926

REACTIONS (1)
  - PARAESTHESIA [None]
